FAERS Safety Report 4946319-7 (Version None)
Quarter: 2006Q1

REPORT INFORMATION
  Report Type: 
  Country: None (occurrence: None)
  Receive Date: 20060316
  Receipt Date: 20060316
  Transmission Date: 20060701
  Serious: Yes (Other)
  Sender: FDA-Public Use
  Company Number: None

PATIENT
  Age: 27 Year
  Sex: Female
  Weight: 49.8957 kg

DRUGS (2)
  1. YASMIN [Suspect]
     Indication: ACNE
     Dosage: 3MG/0.03MG  DAILY  PO
     Route: 048
     Dates: start: 20051230
  2. YASMIN [Suspect]
     Indication: ORAL CONTRACEPTION
     Dosage: 3MG/0.03MG  DAILY  PO
     Route: 048
     Dates: start: 20051230

REACTIONS (9)
  - AGITATION [None]
  - ANXIETY [None]
  - DEPRESSION [None]
  - FEELING OF DESPAIR [None]
  - IRRITABILITY [None]
  - MENTAL DISORDER [None]
  - SCREAMING [None]
  - SUICIDAL IDEATION [None]
  - TEARFULNESS [None]
